FAERS Safety Report 9495609 (Version 2)
Quarter: 2014Q1

REPORT INFORMATION
  Report Type: Spontaneous
  Country: US (occurrence: US)
  Receive Date: 20130903
  Receipt Date: 20140320
  Transmission Date: 20141002
  Serious: Yes (Other)
  Sender: FDA-Public Use
  Company Number: US-BAYER-2013-105543

PATIENT
  Age: 25 Year
  Sex: Female
  Weight: 58.96 kg

DRUGS (6)
  1. MIRENA [Suspect]
     Indication: CONTRACEPTION
     Dosage: 20 MCG/24HR, CONT
     Route: 015
     Dates: start: 20100614, end: 20110420
  2. TRAMADOL HYDROCHLORIDE [Concomitant]
     Dosage: 50 MG, EVERY 6 HOURS PRN
     Route: 048
  3. NYSTATIN [Concomitant]
     Dosage: 100000 G Q 2 HRS EERY DAY
     Route: 061
  4. PRENATAL [Concomitant]
     Dosage: 27-0.8 MG EVERY DAY
     Route: 048
  5. IRON SUPPLEMENT [Concomitant]
     Dosage: 325 MG DAILY
  6. DICLOXACILLIN SODIUM [Concomitant]
     Dosage: 500 MG EVERY 6 HOURS 1 HOUR BEFORE A MEAL OR 2 HOURS AFTER A MEAL
     Route: 048

REACTIONS (6)
  - Uterine perforation [None]
  - Device issue [None]
  - Abdominal pain [None]
  - Medical device pain [None]
  - Infection [None]
  - Injury [None]
